FAERS Safety Report 8065593-4 (Version None)
Quarter: 2012Q1

REPORT INFORMATION
  Report Type: 
  Country: None (occurrence: None)
  Receive Date: 20120124
  Receipt Date: 20120110
  Transmission Date: 20120608
  Serious: Yes (Other)
  Sender: FDA-Public Use
  Company Number: GR-MYLANLABS-2012S1000994

PATIENT
  Age: 67 Year
  Sex: Female

DRUGS (4)
  1. FLUOROURACIL [Suspect]
     Indication: COLON CANCER
     Dosage: BOLUS
  2. LEUCOVORIN CALCIUM [Suspect]
     Indication: COLON CANCER
     Dosage: INFUSION
  3. CETUXIMAB [Suspect]
     Indication: COLON CANCER
     Dosage: INFUSION (ADR ONSET AT INFUSION START, AFTER INFUSION OF 62.5ML)
  4. OXALIPLATIN [Suspect]
     Indication: COLON CANCER
     Route: 065

REACTIONS (6)
  - PALMAR-PLANTAR ERYTHRODYSAESTHESIA SYNDROME [None]
  - ANAPHYLACTIC REACTION [None]
  - NEUROPATHY PERIPHERAL [None]
  - FATIGUE [None]
  - DIARRHOEA [None]
  - NAUSEA [None]
